FAERS Safety Report 7376375-0 (Version None)
Quarter: 2011Q1

REPORT INFORMATION
  Report Type: 
  Country: None (occurrence: None)
  Receive Date: 20110325
  Receipt Date: 20101005
  Transmission Date: 20110831
  Serious: Yes (Other)
  Sender: FDA-Public Use
  Company Number: US-BAYER-201028370NA

PATIENT
  Sex: Female
  Weight: 82.54 kg

DRUGS (6)
  1. EPINEPHRINE [Concomitant]
     Indication: HYPERSENSITIVITY
     Dosage: UNK
     Route: 058
     Dates: start: 20070101
  2. PROVENTIL-HFA [Concomitant]
     Dosage: 90 UNK, UNK
     Dates: start: 20080301
  3. ULTRACET [Concomitant]
     Dosage: UNK
     Route: 048
     Dates: start: 20080101, end: 20080101
  4. PHENERGAN [Concomitant]
     Dosage: UNK
     Route: 048
     Dates: start: 20080101
  5. SINGULAIR [Concomitant]
     Dosage: 10 MG, UNK
     Route: 048
     Dates: start: 20080301
  6. YAZ [Suspect]
     Indication: PRODUCT USED FOR UNKNOWN INDICATION
     Route: 048
     Dates: start: 20080601, end: 20080801

REACTIONS (6)
  - PAIN IN EXTREMITY [None]
  - FEAR [None]
  - EMOTIONAL DISTRESS [None]
  - DEPRESSION [None]
  - DEEP VEIN THROMBOSIS [None]
  - ANXIETY [None]
